FAERS Safety Report 7764135-8 (Version None)
Quarter: 2011Q3

REPORT INFORMATION
  Report Type: 
  Country: None (occurrence: None)
  Receive Date: 20110916
  Receipt Date: 20110807
  Transmission Date: 20111222
  Serious: Yes (Other)
  Sender: FDA-Public Use
  Company Number: DE-1184036

PATIENT
  Sex: Female

DRUGS (3)
  1. DEXA GENTAMICIN [Concomitant]
  2. VIGAMOX [Suspect]
     Dosage: (OPHTHALMIC)
     Dates: start: 20101001
  3. POLYSPECTRAN OPHTHALMIC SOLUTION (POLYSPECTRAN) [Suspect]
     Dosage: (OPHTHALMIC)
     Route: 047
     Dates: start: 20101102

REACTIONS (3)
  - LENTICULAR OPACITIES [None]
  - CORNEAL ABRASION [None]
  - PROCEDURAL COMPLICATION [None]
